FAERS Safety Report 5327697-6 (Version None)
Quarter: 2007Q2

REPORT INFORMATION
  Report Type: 
  Country: None (occurrence: None)
  Receive Date: 20070517
  Receipt Date: 20070508
  Transmission Date: 20071010
  Serious: Yes (Death, Hospitalization)
  Sender: FDA-Public Use
  Company Number: US-MERCK-0705USA02142

PATIENT
  Age: 52 Year
  Sex: Female

DRUGS (2)
  1. ZOCOR [Suspect]
     Route: 048
  2. APAP TAB [Suspect]
     Route: 065

REACTIONS (2)
  - HEPATITIS TOXIC [None]
  - HEPATOCELLULAR DAMAGE [None]
